FAERS Safety Report 20370602 (Version 2)
Quarter: 2022Q1

REPORT INFORMATION
  Report Type: Report from Study
  Country: CN (occurrence: CN)
  Receive Date: 20220124
  Receipt Date: 20220325
  Transmission Date: 20220423
  Serious: Yes (Hospitalization)
  Sender: FDA-Public Use
  Company Number: CN-PFIZER INC-202200066831

PATIENT
  Age: 26 Year
  Sex: Female
  Weight: 48 kg

DRUGS (6)
  1. EPIRUBICIN HYDROCHLORIDE [Suspect]
     Active Substance: EPIRUBICIN HYDROCHLORIDE
     Dosage: 135 MG, Q2W
     Route: 041
     Dates: start: 20211229
  2. PACLITAXEL [Suspect]
     Active Substance: PACLITAXEL
     Dosage: 144 MG, QW (D1, D8, D15/ONE WEEK OFF)
     Route: 041
     Dates: start: 20210910
  3. CYCLOPHOSPHAMIDE [Suspect]
     Active Substance: CYCLOPHOSPHAMIDE
     Dosage: 754 MG, Q2W
     Route: 041
     Dates: start: 20211229
  4. CARBOPLATIN [Suspect]
     Active Substance: CARBOPLATIN
     Dosage: 177 MG, QW (D1, D8, D15/ONE WEEK OFF)
     Dates: start: 20210910
  5. INVESTIGATIONAL PRODUCT [Suspect]
     Active Substance: INVESTIGATIONAL PRODUCT
     Dosage: 200 MG, Q2W
     Route: 041
     Dates: start: 20210910
  6. IRON DEXTRAN [Concomitant]
     Active Substance: IRON DEXTRAN
     Indication: Anaemia
     Dosage: 25 MG, TID
     Route: 048
     Dates: start: 20211127

REACTIONS (1)
  - Vomiting [Recovered/Resolved]

NARRATIVE: CASE EVENT DATE: 20211230
